FAERS Safety Report 10905021 (Version 1)
Quarter: 2015Q1

REPORT INFORMATION
  Report Type: Spontaneous
  Country: US (occurrence: None)
  Receive Date: 20150304
  Receipt Date: 20150304
  Transmission Date: 20150721
  Serious: No
  Sender: FDA-Public Use
  Company Number: None

PATIENT
  Age: 28 Year
  Sex: Female
  Weight: 65.77 kg

DRUGS (7)
  1. MUCIN EX [Concomitant]
  2. TAMIFLU [Suspect]
     Active Substance: OSELTAMIVIR PHOSPHATE
     Indication: INFLUENZA VIRUS TEST POSITIVE
     Dosage: 10 PILLS
     Route: 048
     Dates: start: 20150302, end: 20150303
  3. TYLENOL [Concomitant]
     Active Substance: ACETAMINOPHEN
  4. ZOLOFT [Concomitant]
     Active Substance: SERTRALINE HYDROCHLORIDE
  5. PSEUDOFED [Concomitant]
  6. IBPROPHAN [Concomitant]
  7. DUMMY MULTIVITAMIN [Concomitant]

REACTIONS (2)
  - Middle insomnia [None]
  - Hypervigilance [None]

NARRATIVE: CASE EVENT DATE: 20150303
